FAERS Safety Report 4733445-0 (Version None)
Quarter: 2005Q3

REPORT INFORMATION
  Report Type: 
  Country: None (occurrence: None)
  Receive Date: 20050803
  Receipt Date: 20050726
  Transmission Date: 20060218
  Serious: Yes (Death)
  Sender: FDA-Public Use
  Company Number: FR-JNJFOC-20050705060

PATIENT
  Age: 58 Year
  Sex: Male

DRUGS (4)
  1. DURAGESIC-100 [Suspect]
     Indication: CANCER PAIN
     Route: 062
  2. ACTIQ [Suspect]
     Indication: CANCER PAIN
     Route: 060
  3. SOLU-MEDROL [Concomitant]
     Route: 065
  4. UNSPECIFIED ANTIDEPRESSIVE AGENT [Concomitant]
     Route: 065

REACTIONS (1)
  - NEOPLASM MALIGNANT [None]
